FAERS Safety Report 17619901 (Version 7)
Quarter: 2020Q4

REPORT INFORMATION
  Report Type: Report from Study
  Country: US (occurrence: US)
  Receive Date: 20200403
  Receipt Date: 20201030
  Transmission Date: 20210113
  Serious: Yes (Hospitalization, Other)
  Sender: FDA-Public Use
  Company Number: NVSC2020US090865

PATIENT
  Sex: Female

DRUGS (4)
  1. AFINITOR [Suspect]
     Active Substance: EVEROLIMUS
     Indication: PRODUCT USED FOR UNKNOWN INDICATION
     Dosage: UNK
     Route: 065
  2. PIQRAY [Suspect]
     Active Substance: ALPELISIB
     Indication: BREAST CANCER FEMALE
     Dosage: 150 MG, BID
     Route: 048
  3. PIQRAY [Suspect]
     Active Substance: ALPELISIB
     Indication: BONE CANCER
     Dosage: (1/2 OF A PILL)
     Route: 048
  4. PIQRAY [Suspect]
     Active Substance: ALPELISIB
     Dosage: 75 MG
     Route: 065

REACTIONS (10)
  - Pneumonia [Unknown]
  - Diabetic coma [Unknown]
  - Blood glucose increased [Unknown]
  - Decreased appetite [Unknown]
  - Diabetes mellitus [Unknown]
  - Diabetes mellitus inadequate control [Unknown]
  - COVID-19 [Unknown]
  - Rash [Unknown]
  - Diarrhoea [Unknown]
  - Intentional product use issue [Unknown]
